FAERS Safety Report 23909867 (Version 1)
Quarter: 2024Q2

REPORT INFORMATION
  Report Type: Spontaneous
  Country: ES (occurrence: ES)
  Receive Date: 20240528
  Receipt Date: 20240528
  Transmission Date: 20240716
  Serious: Yes (Life-Threatening, Hospitalization, Other)
  Sender: FDA-Public Use
  Company Number: None

PATIENT
  Age: 31 Year
  Sex: Female

DRUGS (3)
  1. PREGABALIN [Interacting]
     Active Substance: PREGABALIN
     Indication: Product used for unknown indication
     Dosage: 1010 MILLIGRAM 1, TOTAL
     Route: 048
     Dates: start: 20240420, end: 20240420
  2. ESLICARBAZEPINE ACETATE [Interacting]
     Active Substance: ESLICARBAZEPINE ACETATE
     Indication: Product used for unknown indication
     Dosage: 2040 MILLIGRAM 1, TOTAL
     Route: 048
     Dates: start: 20240420, end: 20240420
  3. DIAZEPAM [Interacting]
     Active Substance: DIAZEPAM
     Indication: Product used for unknown indication
     Dosage: 20 GRAM,1  TOTAL
     Route: 048
     Dates: start: 20240420, end: 20240420

REACTIONS (3)
  - Coma [Recovered/Resolved]
  - Suicide attempt [Unknown]
  - Drug interaction [Unknown]

NARRATIVE: CASE EVENT DATE: 20240420
